FAERS Safety Report 4617052-6 (Version None)
Quarter: 2005Q1

REPORT INFORMATION
  Report Type: 
  Country: None (occurrence: None)
  Receive Date: 20050323
  Receipt Date: 20050316
  Transmission Date: 20050727
  Serious: Yes (Other)
  Sender: FDA-Public Use
  Company Number: PHBS2005JP03894

PATIENT
  Age: 41 Year
  Sex: Male

DRUGS (2)
  1. DIOVAN [Suspect]
     Dosage: 80 MG, QD
     Route: 048
     Dates: start: 20050214, end: 20050221
  2. SERENACE [Concomitant]

REACTIONS (2)
  - DEAFNESS [None]
  - TINNITUS [None]
